FAERS Safety Report 7251513-9 (Version None)
Quarter: 2011Q1

REPORT INFORMATION
  Report Type: 
  Country: None (occurrence: None)
  Receive Date: 20110128
  Receipt Date: 20110121
  Transmission Date: 20110831
  Serious: Yes (Other)
  Sender: FDA-Public Use
  Company Number: US-PFIZER INC-2010076955

PATIENT
  Sex: Female

DRUGS (3)
  1. LYRICA [Concomitant]
     Indication: MULTIPLE SCLEROSIS
  2. LYRICA [Concomitant]
     Indication: FIBROMYALGIA
  3. NEURONTIN [Suspect]
     Indication: MULTIPLE SCLEROSIS

REACTIONS (1)
  - URINARY INCONTINENCE [None]
